FAERS Safety Report 9493972 (Version 1)
Quarter: 2013Q3

REPORT INFORMATION
  Report Type: Spontaneous
  Country: AU (occurrence: AU)
  Receive Date: 20130903
  Receipt Date: 20130903
  Transmission Date: 20140515
  Serious: Yes (Other)
  Sender: FDA-Public Use
  Company Number: AU-ROCHE-1268647

PATIENT
  Age: 77 Year
  Sex: Male

DRUGS (5)
  1. ROCEPHIN [Suspect]
     Indication: PRODUCT USED FOR UNKNOWN INDICATION
     Route: 042
  2. DOXYCYCLINE [Suspect]
     Indication: PRODUCT USED FOR UNKNOWN INDICATION
     Route: 065
  3. GENTAMICIN SULPHATE [Suspect]
     Indication: PRODUCT USED FOR UNKNOWN INDICATION
     Route: 042
  4. ATACAND [Concomitant]
     Route: 065
     Dates: start: 20110702, end: 20130308
  5. SOLPRIN [Concomitant]
     Route: 065

REACTIONS (3)
  - Throat tightness [Unknown]
  - Cough [Unknown]
  - Rash erythematous [Unknown]
